FAERS Safety Report 15834093 (Version 6)
Quarter: 2019Q3

REPORT INFORMATION
  Report Type: Report from Study
  Country: KR (occurrence: KR)
  Receive Date: 20190116
  Receipt Date: 20190917
  Transmission Date: 20191004
  Serious: Yes (Hospitalization)
  Sender: FDA-Public Use
  Company Number: KR-DSJP-DSJ-2019-100786AA

PATIENT

DRUGS (25)
  1. DUPHALAC [Concomitant]
     Active Substance: LACTULOSE
     Indication: PRODUCT USED FOR UNKNOWN INDICATION
     Dosage: 15 ML, TID
     Route: 048
     Dates: start: 20180219, end: 20190821
  2. R-THIOCTIC ACID TROMETAMINE [Concomitant]
     Indication: PRODUCT USED FOR UNKNOWN INDICATION
     Dosage: 480 MG, QD
     Route: 048
     Dates: start: 20181015, end: 20190821
  3. PARAMACET [Concomitant]
     Active Substance: ACETAMINOPHEN\TRAMADOL
     Indication: PRODUCT USED FOR UNKNOWN INDICATION
     Dosage: 1 DF, BID
     Route: 048
     Dates: start: 20161229, end: 20190821
  4. ALDACTONE [Concomitant]
     Active Substance: SPIRONOLACTONE
     Dosage: 12.5 MG, QD
     Route: 048
     Dates: start: 20141209, end: 20190821
  5. VAHELVA RESPIMAT [Concomitant]
     Dosage: 2 PUFF, QD
     Dates: start: 20190517, end: 20190821
  6. NOLTEC [Concomitant]
     Dosage: 10 MG, QD
     Route: 048
     Dates: start: 20190730, end: 20190821
  7. FEBURIC [Concomitant]
     Active Substance: FEBUXOSTAT
     Indication: PRODUCT USED FOR UNKNOWN INDICATION
     Dosage: 40 MG, QD
     Route: 048
     Dates: start: 20190712, end: 20190821
  8. ENTELON [Concomitant]
     Dosage: 150 MG, BID
     Route: 048
     Dates: start: 20181214, end: 20190821
  9. TAZOPERAN [Concomitant]
     Dosage: 2.25 G, QID
     Route: 042
     Dates: start: 20190822, end: 20190829
  10. GINEXIN-F [Concomitant]
     Indication: PRODUCT USED FOR UNKNOWN INDICATION
     Dosage: 80 MG, BID
     Route: 048
     Dates: start: 20160310, end: 20190821
  11. COLCHICINE. [Concomitant]
     Active Substance: COLCHICINE
     Indication: PRODUCT USED FOR UNKNOWN INDICATION
     Dosage: 0.3 MG, QD
     Route: 048
     Dates: start: 20161229, end: 20190821
  12. ONEALFA [Concomitant]
     Active Substance: ALFACALCIDOL
     Indication: PRODUCT USED FOR UNKNOWN INDICATION
     Dosage: 0.25 UG, UNK
     Route: 048
     Dates: start: 20180219
  13. RESOLOR [Concomitant]
     Active Substance: PRUCALOPRIDE SUCCINATE
     Dosage: 1 MG, QD
     Route: 048
     Dates: start: 20190312, end: 20190821
  14. SILCON [Concomitant]
     Dosage: 625 MG, TID
     Route: 048
     Dates: start: 20190312, end: 20190821
  15. LASIX [Concomitant]
     Active Substance: FUROSEMIDE
     Indication: PRODUCT USED FOR UNKNOWN INDICATION
     Dosage: 60 MG, BID
     Route: 048
     Dates: start: 20151103, end: 20190821
  16. JANUVIA [Concomitant]
     Active Substance: SITAGLIPTIN PHOSPHATE
     Indication: PRODUCT USED FOR UNKNOWN INDICATION
     Dosage: 50 MG, QD
     Route: 048
     Dates: start: 20170522, end: 20190821
  17. URSA [Concomitant]
     Active Substance: URSODIOL
     Indication: PRODUCT USED FOR UNKNOWN INDICATION
     Dosage: 100 MG, BID
     Route: 048
     Dates: start: 20171218, end: 20190821
  18. ATACAND [Concomitant]
     Active Substance: CANDESARTAN CILEXETIL
     Dosage: 4 MG, QD
     Route: 048
     Dates: start: 20190711, end: 20190821
  19. EDOXABAN [Suspect]
     Active Substance: EDOXABAN TOSYLATE
     Indication: PRODUCT USED FOR UNKNOWN INDICATION
     Dosage: 30 MG, QD
     Route: 048
     Dates: start: 20181018, end: 20190821
  20. STILNOX [Concomitant]
     Active Substance: ZOLPIDEM TARTRATE
     Indication: PRODUCT USED FOR UNKNOWN INDICATION
     Dosage: 12.5 MG, QD
     Route: 048
     Dates: start: 20171016
  21. KASHUT [Concomitant]
     Indication: PRODUCT USED FOR UNKNOWN INDICATION
     Dosage: 5 G, TID
     Route: 048
     Dates: start: 20190628, end: 20190821
  22. LYRICA [Concomitant]
     Active Substance: PREGABALIN
     Dosage: 75 MG, BID
     Route: 048
     Dates: start: 20190529, end: 20190821
  23. DILATREND [Concomitant]
     Active Substance: CARVEDILOL
     Indication: PRODUCT USED FOR UNKNOWN INDICATION
     Dosage: 6.25 MG, BID
     Route: 048
     Dates: start: 20151008, end: 20190821
  24. MUCOSTA [Concomitant]
     Active Substance: REBAMIPIDE
     Indication: PRODUCT USED FOR UNKNOWN INDICATION
     Dosage: 200 MG, UNK
     Route: 048
     Dates: start: 20171030
  25. SPIRIVA [Concomitant]
     Active Substance: TIOTROPIUM BROMIDE MONOHYDRATE
     Indication: PRODUCT USED FOR UNKNOWN INDICATION
     Dosage: 2 PUFF, UNK
     Dates: start: 20180423

REACTIONS (7)
  - Varicose vein [Recovered/Resolved]
  - Appendicitis [Recovered/Resolved]
  - Condition aggravated [Unknown]
  - Headache [Unknown]
  - Abdominal distension [Unknown]
  - Chronic kidney disease [Recovered/Resolved]
  - Constipation [Unknown]

NARRATIVE: CASE EVENT DATE: 20181210
